FAERS Safety Report 6832371-0 (Version None)
Quarter: 2010Q3

REPORT INFORMATION
  Report Type: 
  Country: None (occurrence: None)
  Receive Date: 20100712
  Receipt Date: 20100630
  Transmission Date: 20110219
  Serious: Yes (Hospitalization)
  Sender: FDA-Public Use
  Company Number: US-ELI_LILLY_AND_COMPANY-US201007001292

PATIENT
  Age: 87 Year
  Sex: Female

DRUGS (19)
  1. FORTEO [Suspect]
     Indication: OSTEOPOROSIS
     Dosage: 20 UG, DAILY (1/D)
  2. ISOBIDE [Concomitant]
  3. METOPROLOL [Concomitant]
  4. POLYETHYLENE GLYCOL [Concomitant]
  5. EFFEXOR [Concomitant]
  6. HUMIBID [Concomitant]
  7. ASPIRIN [Concomitant]
  8. AMITRIPTYLINE HYDROCHLORIDE [Concomitant]
  9. ZETIA [Concomitant]
  10. HYDROCODONE BITARTRATE [Concomitant]
  11. LASIX [Concomitant]
  12. SYNTHROID [Concomitant]
  13. PRILOSEC [Concomitant]
  14. POTASSIUM CHLORIDE [Concomitant]
  15. CELEBREX [Concomitant]
  16. ALPRAZOLAM [Concomitant]
  17. VITAMIN D [Concomitant]
  18. NITROGLYCERIN [Concomitant]
  19. PRAVACHOL [Concomitant]

REACTIONS (1)
  - GALLBLADDER OPERATION [None]
